FAERS Safety Report 24686731 (Version 1)
Quarter: 2024Q4

REPORT INFORMATION
  Report Type: Spontaneous
  Country: US (occurrence: None)
  Receive Date: 20241129
  Receipt Date: 20241129
  Transmission Date: 20250115
  Serious: Yes (Life-Threatening, Other)
  Sender: Public
  Company Number: None

PATIENT
  Sex: 0

DRUGS (1)
  1. DUTASTERIDE [Suspect]
     Active Substance: DUTASTERIDE

REACTIONS (8)
  - Dysphagia [None]
  - Immune system disorder [None]
  - Osteoporosis [None]
  - Vomiting [None]
  - Hyperchlorhydria [None]
  - Syncope [None]
  - Hypotension [None]
  - Fatigue [None]

NARRATIVE: CASE EVENT DATE: 20241109
